FAERS Safety Report 6125498-2 (Version None)
Quarter: 2009Q1

REPORT INFORMATION
  Report Type: 
  Country: None (occurrence: None)
  Receive Date: 20090320
  Receipt Date: 20090309
  Transmission Date: 20090719
  Serious: Yes (Other)
  Sender: FDA-Public Use
  Company Number: PHEH2009US00785

PATIENT
  Sex: Female

DRUGS (10)
  1. GLEEVEC [Suspect]
     Indication: CHRONIC MYELOID LEUKAEMIA
     Dosage: UNK
     Dates: start: 20070501
  2. AROMASIN [Suspect]
     Indication: BREAST CANCER
     Dosage: UNK
     Dates: start: 20080101, end: 20081201
  3. FLEXERIL [Suspect]
     Dosage: UNK
     Dates: start: 20081201, end: 20090101
  4. FEMARA [Concomitant]
     Dosage: UNK
     Dates: start: 20090101
  5. ZOFRAN [Concomitant]
  6. IBUPROFEN TABLETS [Concomitant]
  7. ROZEREM [Concomitant]
  8. HALCION [Concomitant]
  9. BUPROPION HCL [Concomitant]
     Dosage: 100 MG, UNK
  10. RADIATION [Concomitant]

REACTIONS (12)
  - ASTHENIA [None]
  - BACK PAIN [None]
  - BONE PAIN [None]
  - BREAST CANCER [None]
  - DIARRHOEA [None]
  - FATIGUE [None]
  - INSOMNIA [None]
  - LETHARGY [None]
  - MUSCLE SPASMS [None]
  - NAUSEA [None]
  - PAIN IN EXTREMITY [None]
  - VOMITING [None]
